FAERS Safety Report 13268507 (Version 2)
Quarter: 2017Q1

REPORT INFORMATION
  Report Type: Spontaneous
  Country: US (occurrence: US)
  Receive Date: 20170224
  Receipt Date: 20170301
  Transmission Date: 20170428
  Serious: No
  Sender: FDA-Public Use
  Company Number: US-009507513-1702USA005611

PATIENT
  Age: 71 Year
  Sex: Male

DRUGS (1)
  1. BELSOMRA [Suspect]
     Active Substance: SUVOREXANT
     Indication: INSOMNIA
     Dosage: 15 MG, QD (NIGHTLY)
     Route: 048
     Dates: start: 20170209, end: 20170210

REACTIONS (7)
  - Pyrexia [Unknown]
  - Hangover [Unknown]
  - Poor quality sleep [Unknown]
  - Headache [Unknown]
  - Chills [Unknown]
  - Hyperhidrosis [Unknown]
  - Tremor [Unknown]

NARRATIVE: CASE EVENT DATE: 20170209
